FAERS Safety Report 18969645 (Version 4)
Quarter: 2021Q3

REPORT INFORMATION
  Report Type: Report from Study
  Country: TR (occurrence: TR)
  Receive Date: 20210304
  Receipt Date: 20210826
  Transmission Date: 20211014
  Serious: Yes (Hospitalization)
  Sender: FDA-Public Use
  Company Number: NVSC2021TR044400

PATIENT
  Age: 61 Year
  Sex: Male
  Weight: 88 kg

DRUGS (13)
  1. COMPARATOR PEMBROLIZUMAB [Suspect]
     Active Substance: PEMBROLIZUMAB
     Indication: NON-SMALL CELL LUNG CANCER
     Dosage: 200 MG, Q3W
     Route: 042
     Dates: start: 20191220, end: 20210122
  2. FOLBIOL [Concomitant]
     Active Substance: FOLIC ACID
     Indication: PREMEDICATION
     Dosage: UNK
     Route: 065
     Dates: start: 20191218
  3. ABSTRAL [Concomitant]
     Active Substance: FENTANYL CITRATE
     Indication: ARTHRALGIA
     Dosage: UNK
     Route: 065
     Dates: start: 20200317
  4. CANAKINUMAB. [Suspect]
     Active Substance: CANAKINUMAB
     Indication: NON-SMALL CELL LUNG CANCER
     Dosage: UNK
     Route: 042
     Dates: start: 20191220, end: 20210122
  5. UROREC [Concomitant]
     Active Substance: SILODOSIN
     Indication: PROSTATOMEGALY
     Dosage: UNK
     Route: 065
     Dates: start: 20190701
  6. DODEX [Concomitant]
     Active Substance: CYANOCOBALAMIN
     Indication: PREMEDICATION
     Dosage: UNK
     Route: 065
     Dates: start: 20191218
  7. XGEVA [Concomitant]
     Active Substance: DENOSUMAB
     Indication: NON-SMALL CELL LUNG CANCER
     Dosage: UNK
     Route: 065
     Dates: start: 20191220
  8. COMPARATOR PEMETREXED [Suspect]
     Active Substance: PEMETREXED DISODIUM
     Indication: NON-SMALL CELL LUNG CANCER
     Dosage: 1000 MG, Q3W
     Route: 042
     Dates: start: 20191220, end: 20210122
  9. COMPARATOR CARBOPLATIN [Suspect]
     Active Substance: CARBOPLATIN
     Indication: NON-SMALL CELL LUNG CANCER
     Dosage: 520 MG
     Route: 042
     Dates: start: 20191220
  10. CLARINASE [Concomitant]
     Active Substance: LORATADINE\PSEUDOEPHEDRINE SULFATE
     Indication: COUGH
     Dosage: UNK
     Route: 065
     Dates: start: 20200124
  11. GERALGINE K [Concomitant]
     Active Substance: ACETAMINOPHEN\CAFFEINE\CODEINE PHOSPHATE
     Indication: ARTHRALGIA
     Dosage: UNK
     Route: 065
     Dates: start: 20200131
  12. ZENTIUS D [Concomitant]
     Indication: GENERAL PHYSICAL CONDITION
     Dosage: UNK
     Route: 065
     Dates: start: 20200124
  13. PAROL [Concomitant]
     Active Substance: ACETAMINOPHEN
     Indication: PROPHYLAXIS
     Dosage: UNK
     Route: 065
     Dates: start: 20190101

REACTIONS (1)
  - Spinal pain [Recovered/Resolved]

NARRATIVE: CASE EVENT DATE: 20210203
